FAERS Safety Report 6399190-3 (Version None)
Quarter: 2009Q4

REPORT INFORMATION
  Report Type: 
  Country: None (occurrence: None)
  Receive Date: 20091008
  Receipt Date: 20090923
  Transmission Date: 20100525
  Serious: Yes (Hospitalization)
  Sender: FDA-Public Use
  Company Number: 220006M09DEU

PATIENT
  Age: 7 Year
  Sex: Male
  Weight: 27 kg

DRUGS (4)
  1. SAIZEN [Suspect]
     Indication: DYSMORPHISM
     Dosage: 0.58 MG, 1 IN 1 DAYS, SUBCUTANEOUS; 0.58 MG, 1 IN 1 DAYS, SUBCUTANEOUS
     Route: 058
     Dates: start: 20060123, end: 20070404
  2. SAIZEN [Suspect]
     Indication: GROWTH HORMONE DEFICIENCY
     Dosage: 0.58 MG, 1 IN 1 DAYS, SUBCUTANEOUS; 0.58 MG, 1 IN 1 DAYS, SUBCUTANEOUS
     Route: 058
     Dates: start: 20060123, end: 20070404
  3. SAIZEN [Suspect]
     Indication: DYSMORPHISM
     Dosage: 0.58 MG, 1 IN 1 DAYS, SUBCUTANEOUS; 0.58 MG, 1 IN 1 DAYS, SUBCUTANEOUS
     Route: 058
     Dates: start: 20071120, end: 20080515
  4. SAIZEN [Suspect]
     Indication: GROWTH HORMONE DEFICIENCY
     Dosage: 0.58 MG, 1 IN 1 DAYS, SUBCUTANEOUS; 0.58 MG, 1 IN 1 DAYS, SUBCUTANEOUS
     Route: 058
     Dates: start: 20071120, end: 20080515

REACTIONS (1)
  - SYNOVITIS [None]
